FAERS Safety Report 21550011 (Version 1)
Quarter: 2022Q4

REPORT INFORMATION
  Report Type: Spontaneous
  Country: IT (occurrence: None)
  Receive Date: 20221103
  Receipt Date: 20221103
  Transmission Date: 20230113
  Serious: Yes (Other)
  Sender: FDA-Public Use
  Company Number: 2022A356531

PATIENT
  Age: 43 Year
  Sex: Male
  Weight: 80 kg

DRUGS (3)
  1. SELUMETINIB [Suspect]
     Active Substance: SELUMETINIB
     Indication: Neurofibromatosis
     Dosage: 25 MG 2 TABLETS TWICE A DAY
     Route: 048
     Dates: start: 20220209, end: 20220809
  2. LYRICA [Concomitant]
     Active Substance: PREGABALIN
     Dosage: 75 MG PER 3 VOLTE AL GIORNO
     Route: 048
     Dates: start: 201607
  3. PATROL [Concomitant]
     Active Substance: ACETAMINOPHEN\TRAMADOL HYDROCHLORIDE
     Dosage: 37.5 MG + 0.325 G TWICE A DAY
     Route: 048
     Dates: start: 202106

REACTIONS (1)
  - Ventricular dysfunction [Recovered/Resolved]

NARRATIVE: CASE EVENT DATE: 20220808
